FAERS Safety Report 5035828-0 (Version None)
Quarter: 2006Q2

REPORT INFORMATION
  Report Type: 
  Country: None (occurrence: None)
  Receive Date: 20060627
  Receipt Date: 20060615
  Transmission Date: 20061013
  Serious: Yes (Death)
  Sender: FDA-Public Use
  Company Number: ES-BRISTOL-MYERS SQUIBB COMPANY-13414172

PATIENT
  Age: 2 Decade
  Sex: Female

DRUGS (2)
  1. ABILIFY [Suspect]
  2. CLOPIXOL [Suspect]

REACTIONS (1)
  - COMPLETED SUICIDE [None]
